FAERS Safety Report 24983050 (Version 1)
Quarter: 2025Q1

REPORT INFORMATION
  Report Type: Report from Study
  Country: US (occurrence: US)
  Receive Date: 20250218
  Receipt Date: 20250218
  Transmission Date: 20250409
  Serious: Yes (Hospitalization, Other)
  Sender: MALLINCKRODT
  Company Number: US-MALLINCKRODT-MNK202407092

PATIENT
  Age: 65 Year
  Sex: Female

DRUGS (6)
  1. CORTICOTROPIN [Suspect]
     Active Substance: CORTICOTROPIN
     Indication: Pulmonary sarcoidosis
     Route: 058
     Dates: start: 20200721
  2. CORTICOTROPIN [Suspect]
     Active Substance: CORTICOTROPIN
     Indication: Pulmonary sarcoidosis
  3. PREDNISONE [Suspect]
     Active Substance: PREDNISONE
     Indication: Product used for unknown indication
  4. LASIX [Concomitant]
     Active Substance: FUROSEMIDE
  5. LASIX [Concomitant]
     Active Substance: FUROSEMIDE
  6. POTASSIUM [Concomitant]
     Active Substance: POTASSIUM

REACTIONS (6)
  - Diabetes mellitus [Not Recovered/Not Resolved]
  - Pulmonary oedema [Unknown]
  - Pneumonitis [Unknown]
  - Cardiac failure [Not Recovered/Not Resolved]
  - Chronic kidney disease [Not Recovered/Not Resolved]
  - Cushingoid [Not Recovered/Not Resolved]

NARRATIVE: CASE EVENT DATE: 20241001
